FAERS Safety Report 10384806 (Version 1)
Quarter: 2014Q3

REPORT INFORMATION
  Report Type: Spontaneous
  Country: DE (occurrence: None)
  Receive Date: 20140812
  Receipt Date: 20140812
  Transmission Date: 20150326
  Serious: Yes (Hospitalization)
  Sender: FDA-Public Use
  Company Number: AUR-APL-2014-08349

PATIENT
  Age: 82 Year
  Sex: Female
  Weight: 91 kg

DRUGS (8)
  1. CLOPIDOGREL [Concomitant]
     Active Substance: CLOPIDOGREL BISULFATE
  2. FURESIS (FUROSEMIDE) [Concomitant]
  3. PANTAZOL (PANTOPRAZOLE SODIUM SESQUIHYDRATE) [Concomitant]
  4. AMLODIPINE [Concomitant]
     Active Substance: AMLODIPINE BESYLATE
  5. FALITHROM (PHENPROCOUMON) [Concomitant]
  6. DOXAZOSIN [Concomitant]
     Active Substance: DOXAZOSIN\DOXAZOSIN MESYLATE
  7. PALLADON (HYDROMORPHONE HYDROCHLORIDE) [Concomitant]
  8. LEVOFLOXACIN [Suspect]
     Active Substance: LEVOFLOXACIN
     Indication: FEBRILE INFECTION
     Route: 048
     Dates: start: 20140707, end: 20140708

REACTIONS (3)
  - Depersonalisation [None]
  - Depressed mood [None]
  - Derealisation [None]

NARRATIVE: CASE EVENT DATE: 20140707
